APPROVED DRUG PRODUCT: ERYTHROMYCIN ETHYLSUCCINATE
Active Ingredient: ERYTHROMYCIN ETHYLSUCCINATE
Strength: EQ 200MG BASE/5ML
Dosage Form/Route: GRANULE;ORAL
Application: A211991 | Product #001
Applicant: PH HEALTH LTD
Approved: Oct 23, 2019 | RLD: No | RS: No | Type: DISCN